FAERS Safety Report 8450273-3 (Version None)
Quarter: 2012Q2

REPORT INFORMATION
  Report Type: 
  Country: None (occurrence: None)
  Receive Date: 20120613
  Receipt Date: 20120604
  Transmission Date: 20120825
  Serious: Yes (Other)
  Sender: FDA-Public Use
  Company Number: GB-GDP-12413974

PATIENT
  Age: 26 Year
  Sex: Female

DRUGS (11)
  1. OMEPRAZOLE [Concomitant]
  2. DOXYCYCLINE [Suspect]
     Indication: PRODUCT USED FOR UNKNOWN INDICATION
     Dates: start: 20120312, end: 20120319
  3. DOXYCYCLINE [Suspect]
     Indication: PRODUCT USED FOR UNKNOWN INDICATION
     Dates: start: 20120524
  4. CITALOPRAM HYDROBROMIDE [Concomitant]
  5. OTOSPORIN [Concomitant]
  6. LORATADINE [Concomitant]
  7. CLOTRIMAZOLE [Concomitant]
  8. PROCHLORPERAZINE [Concomitant]
  9. TRIMETHOPRIM [Concomitant]
  10. MEDROXYPROGESTERONE ACETATE [Concomitant]
  11. SALBUTAMOL ML /00139502/ [Concomitant]

REACTIONS (1)
  - URTICARIA [None]
